FAERS Safety Report 10098969 (Version 1)
Quarter: 2014Q2

REPORT INFORMATION
  Report Type: Spontaneous
  Country: GB (occurrence: GB)
  Receive Date: 20140423
  Receipt Date: 20140423
  Transmission Date: 20141212
  Serious: Yes (Disabling)
  Sender: FDA-Public Use
  Company Number: PHHY2014GB046044

PATIENT
  Age: 62 Year
  Sex: Female

DRUGS (15)
  1. DOXYCYCLINE [Suspect]
     Indication: SINUSITIS
     Dosage: 200 MG, UNK
     Route: 048
     Dates: start: 20140228
  2. DOXYCYCLINE [Suspect]
     Dosage: 100 MG, QD
     Route: 048
     Dates: end: 20140307
  3. ATENOLOL [Concomitant]
     Dosage: 50 MG, QD
  4. CLONIDINE [Concomitant]
     Indication: FLUSHING
     Dosage: 50 MG, TID
  5. DILTIAZEM [Concomitant]
     Dosage: 120 MG, (MODIFIED RELEASE ONCE DAILY)
  6. DOXEPIN [Concomitant]
     Indication: PRURITUS
     Dosage: UNK (5 % CREAM THREE TIMES DAILY PRN)
  7. DUROGESIC [Concomitant]
     Indication: BACK PAIN
     Dosage: UNK (2 PATCHES EVERY 72 HOURS FOR CHRONIC BACK PAIN)
  8. FEXOFENADINE [Concomitant]
     Dosage: 120 MG, UNK
  9. IBUPROFEN [Concomitant]
     Dosage: 400 MG, TID
  10. LOPERAMIDE [Concomitant]
     Dosage: UNK AS REQUIRED
  11. LOSARTAN [Concomitant]
     Indication: HYPERTENSION
     Dosage: 100 MG, QD
  12. OMEPRAZOLE [Concomitant]
     Dosage: 20 MG, UNK
  13. PARACETAMOL [Concomitant]
     Dosage: 1 G, QID
  14. PROCHLORPERAZINE [Concomitant]
     Dosage: 3 MG, (1-2 THREE TIMES DAILY - WHEN REQUIRED)
  15. SIMVASTATIN [Concomitant]
     Indication: HYPERCHOLESTEROLAEMIA
     Dosage: 40 MG, UNK

REACTIONS (1)
  - Tongue discolouration [Recovering/Resolving]
